FAERS Safety Report 5090842-4 (Version None)
Quarter: 2006Q3

REPORT INFORMATION
  Report Type: 
  Country: None (occurrence: None)
  Receive Date: 20060823
  Receipt Date: 20060808
  Transmission Date: 20061208
  Serious: Yes (Other)
  Sender: FDA-Public Use
  Company Number: CHNY2006BR02387

PATIENT
  Age: 30 Month
  Sex: Male

DRUGS (1)
  1. AGASTEN (NCH) (CLEMASTINE HYDROGEN FUMARATE) SYRUP [Suspect]
     Indication: HYPERSENSITIVITY
     Dosage: 2.5 ML, Q12H, ORAL
     Route: 048
     Dates: start: 20060805, end: 20060806

REACTIONS (8)
  - CONDITION AGGRAVATED [None]
  - HAEMATOMA [None]
  - INSOMNIA [None]
  - IRRITABILITY [None]
  - OEDEMA PERIPHERAL [None]
  - PYREXIA [None]
  - SKIN DISCOLOURATION [None]
  - SWELLING [None]
